FAERS Safety Report 17985658 (Version 3)
Quarter: 2020Q3

REPORT INFORMATION
  Report Type: Report from Study
  Country: US (occurrence: US)
  Receive Date: 20200706
  Receipt Date: 20200716
  Transmission Date: 20201103
  Serious: Yes (Death, Hospitalization, Other)
  Sender: FDA-Public Use
  Company Number: US-BRISTOL-MYERS SQUIBB COMPANY-BMS-2020-052926

PATIENT
  Age: 48 Year
  Sex: Male
  Weight: 45.5 kg

DRUGS (4)
  1. NINTEDANIB [Suspect]
     Active Substance: NINTEDANIB
     Indication: NON-SMALL CELL LUNG CANCER
     Dosage: 150 MILLIGRAM, QD
     Route: 048
     Dates: start: 20200617, end: 20200630
  2. MORPHINE [Concomitant]
     Active Substance: MORPHINE
     Indication: PRODUCT USED FOR UNKNOWN INDICATION
     Dosage: 2 TAB, Q8H
     Route: 048
  3. IPILIMUMAB [Suspect]
     Active Substance: IPILIMUMAB
     Indication: NON-SMALL CELL LUNG CANCER
     Dosage: 1 MILLIGRAM/KILOGRAM, Q6WK
     Route: 042
     Dates: start: 20200617
  4. NIVOLUMAB [Suspect]
     Active Substance: NIVOLUMAB
     Indication: NON-SMALL CELL LUNG CANCER
     Dosage: 3 MILLIGRAM/KILOGRAM, Q2WK
     Route: 042
     Dates: start: 20200617

REACTIONS (2)
  - Hypoxia [Not Recovered/Not Resolved]
  - Death [Fatal]

NARRATIVE: CASE EVENT DATE: 20200701
